FAERS Safety Report 21743661 (Version 1)
Quarter: 2022Q4

REPORT INFORMATION
  Report Type: Spontaneous
  Country: FR (occurrence: FR)
  Receive Date: 20221217
  Receipt Date: 20221217
  Transmission Date: 20230112
  Serious: Yes (Hospitalization, Other)
  Sender: FDA-Public Use
  Company Number: FR-AFSSAPS-GR20222501

PATIENT
  Age: 58 Year
  Sex: Female

DRUGS (4)
  1. VENLAFAXINE [Suspect]
     Active Substance: VENLAFAXINE HYDROCHLORIDE
     Indication: Product used for unknown indication
     Dosage: 75 MILLIGRAM, ONCE A DAY (75 MG LP - NP)
     Route: 048
     Dates: start: 20220907, end: 20220907
  2. ZOPICLONE [Suspect]
     Active Substance: ZOPICLONE
     Indication: Product used for unknown indication
     Dosage: 40 DOSAGE FORM, ONCE A DAY (7.5 MG X40)
     Route: 048
     Dates: start: 20220907, end: 20220907
  3. OXAZEPAM [Suspect]
     Active Substance: OXAZEPAM
     Indication: Product used for unknown indication
     Dosage: UNK UNK, ONCE A DAY (5 BO?TES)
     Route: 048
     Dates: start: 20220907, end: 20220907
  4. QUETIAPINE FUMARATE [Suspect]
     Active Substance: QUETIAPINE FUMARATE
     Indication: Product used for unknown indication
     Dosage: 90 DOSAGE FORM, ONCE A DAY
     Route: 048
     Dates: start: 20220907, end: 20220907

REACTIONS (2)
  - Coma [Not Recovered/Not Resolved]
  - Poisoning deliberate [Recovered/Resolved]

NARRATIVE: CASE EVENT DATE: 20220907
